FAERS Safety Report 14670492 (Version 2)
Quarter: 2018Q2

REPORT INFORMATION
  Report Type: Spontaneous
  Country: US (occurrence: US)
  Receive Date: 20180322
  Receipt Date: 20180626
  Transmission Date: 20180711
  Serious: Yes (Disabling, Other)
  Sender: FDA-Public Use
  Company Number: US-REGENERON PHARMACEUTICALS, INC.-2018-17624

PATIENT

DRUGS (5)
  1. EYLEA [Suspect]
     Active Substance: AFLIBERCEPT
     Dosage: 0.5 ML, LEFT EYE
     Route: 031
     Dates: start: 20171218, end: 20171218
  2. EYLEA [Suspect]
     Active Substance: AFLIBERCEPT
     Indication: MACULAR DEGENERATION
     Dosage: 0.5 ML, EVERY 6 WEEKS, LEFT EYE
     Route: 031
     Dates: start: 20170628, end: 20180129
  3. EYLEA [Suspect]
     Active Substance: AFLIBERCEPT
     Dosage: 0.5 ML, LEFT EYE
     Route: 031
     Dates: start: 20170807, end: 20170807
  4. EYLEA [Suspect]
     Active Substance: AFLIBERCEPT
     Dosage: 0.5 ML, LEFT EYE
     Route: 031
     Dates: start: 20171011, end: 20171011
  5. EYLEA [Suspect]
     Active Substance: AFLIBERCEPT
     Dosage: 0.5 ML, LEFT EYE, LAST DOSE
     Route: 031
     Dates: start: 20180129, end: 20180129

REACTIONS (7)
  - Vomiting [Recovered/Resolved]
  - Blindness unilateral [Not Recovered/Not Resolved]
  - Intraocular pressure increased [Recovered/Resolved]
  - Retinal detachment [Not Recovered/Not Resolved]
  - Hypopyon [Recovered/Resolved]
  - Non-infectious endophthalmitis [Not Recovered/Not Resolved]
  - Eye inflammation [Not Recovered/Not Resolved]

NARRATIVE: CASE EVENT DATE: 20180130
